FAERS Safety Report 5339040-7 (Version None)
Quarter: 2007Q2

REPORT INFORMATION
  Report Type: 
  Country: None (occurrence: None)
  Receive Date: 20070402
  Receipt Date: 20060907
  Transmission Date: 20071010
  Serious: Yes (Other)
  Sender: FDA-Public Use
  Company Number: HQWYE604112SEP06

PATIENT
  Age: 58 Year
  Weight: 68.1 kg

DRUGS (4)
  1. PROMETHAZINE HCL [Suspect]
     Dates: start: 20060101
  2. LUNESTA [Suspect]
     Indication: INSOMNIA
     Dosage: 3 MG 1X PER 1 DAY, ORAL
     Route: 048
     Dates: start: 20060101
  3. NEXIUM [Concomitant]
  4. PRAVACHOL [Concomitant]

REACTIONS (2)
  - CHILLS [None]
  - PYREXIA [None]
